FAERS Safety Report 9714392 (Version 1)
Quarter: 2013Q4

REPORT INFORMATION
  Report Type: Report from Study
  Country: US (occurrence: US)
  Receive Date: 20131126
  Receipt Date: 20131126
  Transmission Date: 20140711
  Serious: Yes (Other)
  Sender: FDA-Public Use
  Company Number: US-B.I. PHARMACEUTICALS,INC./RIDGEFIELD-2013-BI-38834GD

PATIENT
  Age: 78 Year
  Sex: Male

DRUGS (3)
  1. PRAMIPEXOLE [Suspect]
     Indication: PARKINSON^S DISEASE
     Dosage: 0.75 MG
  2. CARBIDOPA W/LEVODOPA [Suspect]
     Indication: PARKINSON^S DISEASE
     Dosage: 450 MG
  3. CLONAZEPAM [Suspect]
     Indication: INSOMNIA
     Dosage: 0.5 MG

REACTIONS (5)
  - Tremor [Unknown]
  - Restless legs syndrome [Unknown]
  - Dystonia [Unknown]
  - Somnolence [Unknown]
  - Balance disorder [Unknown]
